FAERS Safety Report 5572466-5 (Version None)
Quarter: 2007Q4

REPORT INFORMATION
  Report Type: 
  Country: None (occurrence: None)
  Receive Date: 20071222
  Receipt Date: 20071213
  Transmission Date: 20080405
  Serious: Yes (Other)
  Sender: FDA-Public Use
  Company Number: US-PFIZER INC-2007106510

PATIENT
  Sex: Female
  Weight: 63.5 kg

DRUGS (8)
  1. CHANTIX [Suspect]
     Indication: SMOKING CESSATION THERAPY
     Dates: start: 20071118, end: 20071208
  2. SYNTHROID [Concomitant]
  3. EDECRIN [Concomitant]
     Indication: HYPERTENSION
  4. LEXAPRO [Concomitant]
  5. COSOPT [Concomitant]
     Indication: GLAUCOMA
     Route: 047
  6. ALPHAGAN [Concomitant]
     Indication: GLAUCOMA
     Route: 047
  7. XALATAN [Concomitant]
     Indication: GLAUCOMA
     Route: 047
  8. AVAPRO [Concomitant]
     Indication: HYPERTENSION

REACTIONS (7)
  - ACTIVITIES OF DAILY LIVING IMPAIRED [None]
  - DIARRHOEA [None]
  - DYSPEPSIA [None]
  - FATIGUE [None]
  - NAUSEA [None]
  - SOMNOLENCE [None]
  - VOMITING PROJECTILE [None]
